FAERS Safety Report 17538267 (Version 1)
Quarter: 2020Q1

REPORT INFORMATION
  Report Type: Spontaneous
  Country: US (occurrence: US)
  Receive Date: 20200313
  Receipt Date: 20200313
  Transmission Date: 20200409
  Serious: Yes (Other)
  Sender: FDA-Public Use
  Company Number: None

PATIENT
  Age: 56 Year
  Sex: Female
  Weight: 84.15 kg

DRUGS (1)
  1. RANOLAZINE ER [Suspect]
     Active Substance: RANOLAZINE
     Indication: ANGINA UNSTABLE
     Route: 048
     Dates: start: 20200227, end: 20200311

REACTIONS (2)
  - Angina pectoris [None]
  - Product substitution issue [None]

NARRATIVE: CASE EVENT DATE: 20200308
